FAERS Safety Report 14993972 (Version 1)
Quarter: 2018Q2

REPORT INFORMATION
  Report Type: Spontaneous
  Country: GB (occurrence: GB)
  Receive Date: 20180611
  Receipt Date: 20180611
  Transmission Date: 20180711
  Serious: Yes (Other)
  Sender: FDA-Public Use
  Company Number: GB-TEVA-2018-GB-904895

PATIENT
  Age: 74 Year
  Sex: Female

DRUGS (5)
  1. BISACODYL. [Concomitant]
     Active Substance: BISACODYL
  2. PARACETAMOL [Concomitant]
     Active Substance: ACETAMINOPHEN
  3. THYROXINE [Concomitant]
     Active Substance: LEVOTHYROXINE
  4. DILTIAZEM. [Suspect]
     Active Substance: DILTIAZEM
     Indication: ANAL FISSURE
     Dosage: 2 DOSAGE FORMS DAILY; MORNING AND NIGHT
     Dates: start: 20180404
  5. TRAMADOL. [Concomitant]
     Active Substance: TRAMADOL

REACTIONS (4)
  - Insomnia [Not Recovered/Not Resolved]
  - Muscle spasms [Not Recovered/Not Resolved]
  - Heart rate increased [Not Recovered/Not Resolved]
  - Diarrhoea [Not Recovered/Not Resolved]

NARRATIVE: CASE EVENT DATE: 20180404
